FAERS Safety Report 7830504-0 (Version None)
Quarter: 2011Q4

REPORT INFORMATION
  Report Type: 
  Country: None (occurrence: None)
  Receive Date: 20111021
  Receipt Date: 20111019
  Transmission Date: 20120403
  Serious: Yes (Death)
  Sender: FDA-Public Use
  Company Number: GB-ABBOTT-11P-167-0866419-00

PATIENT
  Sex: Male

DRUGS (2)
  1. AZULFIDINE [Concomitant]
     Indication: PRODUCT USED FOR UNKNOWN INDICATION
  2. HUMIRA [Suspect]
     Indication: RHEUMATOID ARTHRITIS
     Route: 058
     Dates: start: 20090312

REACTIONS (2)
  - BRAIN STEM INFARCTION [None]
  - HAEMORRHAGE INTRACRANIAL [None]
